FAERS Safety Report 4765644-6 (Version None)
Quarter: 2005Q3

REPORT INFORMATION
  Report Type: 
  Country: None (occurrence: None)
  Receive Date: 20050906
  Receipt Date: 20050819
  Transmission Date: 20060218
  Serious: Yes (Hospitalization)
  Sender: FDA-Public Use
  Company Number: 220001N05CAN

PATIENT
  Age: 13 Year
  Sex: Male

DRUGS (3)
  1. SAIZEN [Suspect]
     Dates: start: 20040212, end: 20041118
  2. SAIZEN [Suspect]
     Dates: start: 20050421
  3. LEVOTHYROXINE SODIUM [Concomitant]

REACTIONS (4)
  - CRANIOPHARYNGIOMA [None]
  - NEOPLASM PROGRESSION [None]
  - PROCEDURAL SITE REACTION [None]
  - ULCER [None]
